FAERS Safety Report 4830916-3 (Version None)
Quarter: 2005Q4

REPORT INFORMATION
  Report Type: 
  Country: None (occurrence: None)
  Receive Date: 20051114
  Receipt Date: 20051101
  Transmission Date: 20060501
  Serious: Yes (Hospitalization)
  Sender: FDA-Public Use
  Company Number: GBS051118988

PATIENT
  Age: 69 Year
  Sex: Female
  Weight: 55 kg

DRUGS (9)
  1. YENTREVE (DULOXETINE HYDROCHLORIDE) [Suspect]
     Indication: STRESS INCONTINENCE
     Dates: start: 20050922, end: 20050923
  2. PHENELZINE [Concomitant]
  3. VALSARTAN [Concomitant]
  4. GAVISCON [Concomitant]
  5. PANTOPRAZOLE [Concomitant]
  6. EVOREL CONTI [Concomitant]
  7. LACIDIPINE [Concomitant]
  8. INDAPAMIDE [Concomitant]
  9. MELOXICAM [Concomitant]

REACTIONS (2)
  - LABELLED DRUG-DRUG INTERACTION MEDICATION ERROR [None]
  - SEROTONIN SYNDROME [None]
